FAERS Safety Report 7795091-4 (Version None)
Quarter: 2011Q4

REPORT INFORMATION
  Report Type: 
  Country: None (occurrence: None)
  Receive Date: 20111004
  Receipt Date: 20110920
  Transmission Date: 20120403
  Serious: Yes (Other)
  Sender: FDA-Public Use
  Company Number: US-JNJFOC-20110910859

PATIENT
  Age: 88 Year
  Sex: Female
  Weight: 56.7 kg

DRUGS (5)
  1. A AND E OINTMENT [Concomitant]
     Indication: PRODUCT USED FOR UNKNOWN INDICATION
     Dosage: DAILY
     Route: 067
  2. FOCUS FACTOR [Concomitant]
     Indication: MEMORY IMPAIRMENT
     Route: 065
  3. TUCKS MEDICATED PADS [Suspect]
     Indication: HAEMORRHOIDS
     Route: 061
     Dates: start: 20110101
  4. FLAXSEED OIL [Concomitant]
     Indication: ROUTINE HEALTH MAINTENANCE
     Route: 065
  5. FISH OIL [Concomitant]
     Indication: ROUTINE HEALTH MAINTENANCE
     Route: 065

REACTIONS (2)
  - VAGINAL DISORDER [None]
  - ACCIDENTAL EXPOSURE [None]
